FAERS Safety Report 6180696-7 (Version None)
Quarter: 2009Q2

REPORT INFORMATION
  Report Type: 
  Country: None (occurrence: None)
  Receive Date: 20090506
  Receipt Date: 20090430
  Transmission Date: 20091009
  Serious: Yes (Hospitalization)
  Sender: FDA-Public Use
  Company Number: US-B.I. PHARMACEUTICALS,INC./RIDGEFIELD-2009-BP-00480BP

PATIENT
  Sex: Male

DRUGS (18)
  1. FLOMAX [Suspect]
     Indication: SINGLE FUNCTIONAL KIDNEY
     Route: 048
  2. LOPRESSOR [Concomitant]
     Dosage: 25MG
  3. ZOCOR [Concomitant]
     Dosage: 40MG
  4. GLIPIZIDE [Concomitant]
     Dosage: 5MG
  5. NEURONTIN [Concomitant]
     Dosage: 1200MG
  6. DARVOCET-N 100 [Concomitant]
  7. OMEPRAZOLE [Concomitant]
     Dosage: 20MG
  8. KLOR-CON [Concomitant]
     Dosage: 10MEQ
  9. HYDROCHLOROTHIAZIDE [Concomitant]
     Dosage: 12.5MG
  10. IRON [Concomitant]
     Dosage: 50MG
  11. VITAMIN B-12 [Concomitant]
     Dosage: 1000MCG
  12. NITROSTAT [Concomitant]
  13. OCUVITE WITH LUTEIN [Concomitant]
  14. MULTI-VITAMIN [Concomitant]
  15. METOPROLOL SUCCINATE [Concomitant]
  16. PRAVASTATIN [Concomitant]
  17. GABAPENTIN [Concomitant]
  18. PROPOXYPHENE NAPSYLATE W/ ACETAMINOPHEN [Concomitant]

REACTIONS (2)
  - EMOTIONAL DISTRESS [None]
  - NONSPECIFIC REACTION [None]
